FAERS Safety Report 6043287-4 (Version None)
Quarter: 2009Q1

REPORT INFORMATION
  Report Type: 
  Country: None (occurrence: None)
  Receive Date: 20090119
  Receipt Date: 20090114
  Transmission Date: 20090719
  Serious: Yes (Other)
  Sender: FDA-Public Use
  Company Number: CA-ALLERGAN-0816523US

PATIENT
  Sex: Female

DRUGS (5)
  1. BOTULINUM TOXIN TYPE A [Suspect]
     Indication: SPASMODIC DYSPHONIA
     Dosage: UNK, UNKNOWN
     Route: 030
     Dates: start: 20080926, end: 20080926
  2. LIPITOR [Concomitant]
  3. EVISTA [Concomitant]
  4. ELTROXIN [Concomitant]
  5. LORAZEPAM [Concomitant]

REACTIONS (4)
  - APHONIA [None]
  - CHOKING [None]
  - DYSPHAGIA [None]
  - DYSPHONIA [None]
